FAERS Safety Report 9216404 (Version 1)
Quarter: 2013Q2

REPORT INFORMATION
  Report Type: Spontaneous
  Country: US (occurrence: None)
  Receive Date: 20130402
  Receipt Date: 20130402
  Transmission Date: 20140414
  Serious: Yes (Hospitalization)
  Sender: FDA-Public Use
  Company Number: 2013US0123

PATIENT
  Age: 10 Year
  Sex: Female

DRUGS (1)
  1. ORFADIN (NITISINONE) [Suspect]
     Dates: start: 20030716

REACTIONS (1)
  - Liver transplant [None]
